FAERS Safety Report 5487315-3 (Version None)
Quarter: 2007Q4

REPORT INFORMATION
  Report Type: 
  Country: None (occurrence: None)
  Receive Date: 20071016
  Receipt Date: 20071011
  Transmission Date: 20080405
  Serious: Yes (Other)
  Sender: FDA-Public Use
  Company Number: JP-MERCK-0709USA02796

PATIENT
  Age: 49 Year
  Sex: Male

DRUGS (2)
  1. PROPECIA [Suspect]
     Indication: MALE PATTERN BALDNESS
     Route: 048
     Dates: start: 20070319
  2. PROPECIA [Suspect]
     Route: 048

REACTIONS (2)
  - ARRHYTHMIA [None]
  - BLOOD GLUCOSE INCREASED [None]
